FAERS Safety Report 7899052-6 (Version None)
Quarter: 2011Q4

REPORT INFORMATION
  Report Type: 
  Country: None (occurrence: None)
  Receive Date: 20111107
  Receipt Date: 20111103
  Transmission Date: 20120403
  Serious: Yes (Hospitalization)
  Sender: FDA-Public Use
  Company Number: AT-ROCHE-1009469

PATIENT
  Age: 51 Year
  Sex: Female

DRUGS (4)
  1. IRINOTECAN HCL [Suspect]
     Indication: OLIGODENDROGLIOMA
     Route: 042
     Dates: start: 20110620, end: 20110705
  2. AVASTIN [Suspect]
     Indication: OLIGODENDROGLIOMA
     Route: 042
     Dates: start: 20110620, end: 20110705
  3. PAROXETINE HCL [Concomitant]
  4. KEPPRA [Concomitant]

REACTIONS (2)
  - FALL [None]
  - HEMIPARESIS [None]
